FAERS Safety Report 19373229 (Version 1)
Quarter: 2021Q2

REPORT INFORMATION
  Report Type: Spontaneous
  Country: FR (occurrence: FR)
  Receive Date: 20210604
  Receipt Date: 20210604
  Transmission Date: 20210717
  Serious: Yes (Hospitalization, Other)
  Sender: FDA-Public Use
  Company Number: FR-TEVA-2021-FR-1918536

PATIENT
  Sex: Male

DRUGS (1)
  1. COTRIMOXAZOLE [Suspect]
     Active Substance: SULFAMETHOXAZOLE\TRIMETHOPRIM
     Route: 065
     Dates: start: 20170816

REACTIONS (15)
  - Pyrexia [Unknown]
  - Drug reaction with eosinophilia and systemic symptoms [Unknown]
  - Psychiatric decompensation [Unknown]
  - Asthenia [Unknown]
  - Rash [Unknown]
  - Hyperleukocytosis [Recovered/Resolved]
  - Skin lesion [Unknown]
  - Left ventricular dysfunction [Recovered/Resolved]
  - Diarrhoea [Unknown]
  - Hypertension [Unknown]
  - Abdominal pain [Unknown]
  - Acute kidney injury [Unknown]
  - Septic phlebitis [Unknown]
  - Pericardial effusion [Recovering/Resolving]
  - Haematuria [Unknown]

NARRATIVE: CASE EVENT DATE: 2017
